FAERS Safety Report 5324046-4 (Version None)
Quarter: 2007Q2

REPORT INFORMATION
  Report Type: 
  Country: None (occurrence: None)
  Receive Date: 20070514
  Receipt Date: 20070503
  Transmission Date: 20071010
  Serious: Yes (Hospitalization)
  Sender: FDA-Public Use
  Company Number: CA-AMGEN-US198595

PATIENT
  Sex: Male

DRUGS (14)
  1. PANITUMUMAB [Suspect]
     Indication: COLORECTAL CANCER
     Route: 042
     Dates: start: 20061018
  2. OXALIPLATIN [Concomitant]
     Route: 042
     Dates: start: 20061018
  3. FLUOROURACIL [Concomitant]
     Route: 042
     Dates: start: 20061018
  4. LEUCOVORIN CALCIUM [Concomitant]
     Route: 042
     Dates: start: 20061018
  5. ASPIRIN [Concomitant]
     Route: 065
  6. LASIX [Concomitant]
     Route: 065
  7. ALTACE [Concomitant]
     Route: 065
     Dates: end: 20061031
  8. METOPROLOL SUCCINATE [Concomitant]
     Route: 065
  9. AVODART [Concomitant]
     Route: 065
  10. PLAVIX [Concomitant]
     Route: 065
  11. NITRO-DUR [Concomitant]
     Route: 061
  12. LIPITOR [Concomitant]
     Route: 065
  13. KYTRIL [Concomitant]
  14. DECADRON [Concomitant]

REACTIONS (1)
  - SYNCOPE [None]
